FAERS Safety Report 11377980 (Version 1)
Quarter: 2015Q3

REPORT INFORMATION
  Report Type: Spontaneous
  Country: US (occurrence: US)
  Receive Date: 20150811
  Receipt Date: 20150811
  Transmission Date: 20151125
  Serious: No
  Sender: FDA-Public Use
  Company Number: US-ELI_LILLY_AND_COMPANY-US200912002585

PATIENT
  Age: 73 Year
  Sex: Female

DRUGS (1)
  1. HUMULIN N [Suspect]
     Active Substance: INSULIN HUMAN
     Indication: DIABETES MELLITUS
     Dosage: 42 U, OTHER
     Dates: start: 2003

REACTIONS (6)
  - Gait disturbance [Recovering/Resolving]
  - Hypersensitivity [Recovering/Resolving]
  - Arthralgia [Recovering/Resolving]
  - Flushing [Recovering/Resolving]
  - Back pain [Recovering/Resolving]
  - Facial pain [Recovering/Resolving]

NARRATIVE: CASE EVENT DATE: 20091204
